FAERS Safety Report 10506536 (Version 2)
Quarter: 2014Q4

REPORT INFORMATION
  Report Type: Spontaneous
  Country: JP (occurrence: JP)
  Receive Date: 20141009
  Receipt Date: 20141029
  Transmission Date: 20150528
  Serious: Yes (Death, Hospitalization, Other)
  Sender: FDA-Public Use
  Company Number: JP-BRISTOL-MYERS SQUIBB COMPANY-21479308

PATIENT
  Age: 65 Year
  Sex: Male

DRUGS (8)
  1. FLUTOPRAZEPAM [Concomitant]
     Active Substance: FLUTOPRAZEPAM
  2. SEDIEL [Concomitant]
     Active Substance: TANDOSPIRONE
  3. LONASEN [Concomitant]
     Active Substance: BLONANSERIN
  4. DIMETICONE [Concomitant]
     Active Substance: DIMETHICONE
  5. PALIPERIDONE [Suspect]
     Active Substance: PALIPERIDONE
     Dosage: 03JUL-03JUL2014, 31JUL-31JUL2014:150MG
     Route: 030
     Dates: start: 20140703
  6. RAMOSETRON HCL [Concomitant]
  7. ABILIFY [Suspect]
     Active Substance: ARIPIPRAZOLE
     Indication: SCHIZOPHRENIA
     Dosage: 20SEP-20SEP11-10MG?06DEC-02APR12-12MG?03APR-03JUL14-3MG?04JUL-05JUL14-24MG?06JUL-16SEP14-30MG
     Route: 048
     Dates: start: 20110920
  8. HALOPERIDOL DECANOATE. [Concomitant]
     Active Substance: HALOPERIDOL DECANOATE

REACTIONS (8)
  - Abdominal pain [Recovered/Resolved]
  - Hyponatraemia [Fatal]
  - Blood creatine phosphokinase increased [Unknown]
  - Platelet count decreased [Unknown]
  - Cerebral atrophy [Fatal]
  - Electrolyte imbalance [Fatal]
  - Hallucination, auditory [Recovered/Resolved]
  - Loss of consciousness [Unknown]

NARRATIVE: CASE EVENT DATE: 2014
